FAERS Safety Report 11822358 (Version 2)
Quarter: 2016Q1

REPORT INFORMATION
  Report Type: Spontaneous
  Country: US (occurrence: US)
  Receive Date: 20151210
  Receipt Date: 20160202
  Transmission Date: 20160525
  Serious: No
  Sender: FDA-Public Use
  Company Number: US-JNJFOC-20140903006

PATIENT
  Age: 66 Year
  Sex: Female

DRUGS (14)
  1. BIFIDOBACTERIUM LACTIS [Concomitant]
  2. SPIRONOLACTONE. [Concomitant]
     Active Substance: SPIRONOLACTONE
  3. IMBRUVICA [Suspect]
     Active Substance: IBRUTINIB
     Indication: MANTLE CELL LYMPHOMA
     Route: 065
     Dates: start: 20131218
  4. MAGNESIUM [Concomitant]
     Active Substance: MAGNESIUM
  5. COENZYME Q10 [Concomitant]
     Active Substance: UBIDECARENONE
  6. ATIVAN [Concomitant]
     Active Substance: LORAZEPAM
  7. RITUXAN [Concomitant]
     Active Substance: RITUXIMAB
  8. DEXTRIN [Concomitant]
     Active Substance: ICODEXTRIN
  9. IMBRUVICA [Suspect]
     Active Substance: IBRUTINIB
     Indication: MANTLE CELL LYMPHOMA
     Route: 065
  10. PROTONIX [Concomitant]
     Active Substance: PANTOPRAZOLE SODIUM
  11. CARVEDILOL. [Concomitant]
     Active Substance: CARVEDILOL
     Indication: ARRHYTHMIA
  12. LEVOTHYROXINE. [Concomitant]
     Active Substance: LEVOTHYROXINE
  13. CALCIUM [Concomitant]
     Active Substance: CALCIUM
  14. IMBRUVICA [Suspect]
     Active Substance: IBRUTINIB
     Indication: MANTLE CELL LYMPHOMA
     Route: 065

REACTIONS (12)
  - Fatigue [Not Recovered/Not Resolved]
  - Arrhythmia [Not Recovered/Not Resolved]
  - Sleep disorder [Not Recovered/Not Resolved]
  - Arthralgia [Not Recovered/Not Resolved]
  - Contusion [Unknown]
  - Abdominal pain [Not Recovered/Not Resolved]
  - Myalgia [Not Recovered/Not Resolved]
  - Muscle spasms [Not Recovered/Not Resolved]
  - Impaired healing [Unknown]
  - Weight increased [Not Recovered/Not Resolved]
  - Oedema peripheral [Recovering/Resolving]
  - Petechiae [Not Recovered/Not Resolved]

NARRATIVE: CASE EVENT DATE: 20131220
